FAERS Safety Report 7777259-6 (Version None)
Quarter: 2011Q3

REPORT INFORMATION
  Report Type: 
  Country: None (occurrence: None)
  Receive Date: 20110926
  Receipt Date: 20110914
  Transmission Date: 20111222
  Serious: Yes (Other)
  Sender: FDA-Public Use
  Company Number: PHHY2011BR82628

PATIENT
  Age: 59 Year
  Sex: Male
  Weight: 97 kg

DRUGS (13)
  1. GALVUS MET [Suspect]
     Indication: DIABETES MELLITUS
     Dosage: 1 DF, BID (500 MG METFORMIN, 50 MG VILDAGLIPTIN)
  2. ATENOLOL [Concomitant]
     Dosage: 50 MG, UNK
  3. HYDROCHLOROTHIAZIDE [Concomitant]
     Dosage: 12.5 MG, UNK
  4. ROSUVASTATIN [Concomitant]
     Dosage: 10 MG, UNK
  5. ASPIRIN [Concomitant]
     Dosage: 100 MG, PRN
  6. GLICLAZIDE [Concomitant]
     Dosage: 30 MG, IN THE MORNING
  7. LOSARTAN POTASSIUM [Concomitant]
     Dosage: 100 MG, UNK
  8. METFORMIN HCL [Suspect]
     Dosage: 500 MG, (MORNING AND IN THE EVENING)
  9. AMLODIPINE [Concomitant]
     Dosage: 5 MG, UNK
  10. RILMENIDINE [Concomitant]
     Dosage: 1 MG, UNK
  11. RASILEZ AMLO [Suspect]
     Indication: HYPERTENSION
     Dosage: 1 DF, UNK
  12. CLONAZEPAM [Concomitant]
     Dosage: 0.25 MG, IN BEGINNING OF DAY, IN EVENING AT BED TIME
  13. INDAPAMIDE [Concomitant]
     Dosage: 1.5 MG, QD

REACTIONS (3)
  - SLEEP APNOEA SYNDROME [None]
  - OEDEMA PERIPHERAL [None]
  - BLOOD PRESSURE FLUCTUATION [None]
